FAERS Safety Report 22531125 (Version 2)
Quarter: 2023Q2

REPORT INFORMATION
  Report Type: Report from Study
  Country: NO (occurrence: NO)
  Receive Date: 20230607
  Receipt Date: 20230627
  Transmission Date: 20230721
  Serious: Yes (Hospitalization)
  Sender: FDA-Public Use
  Company Number: NO-SA-SAC20230605000130

PATIENT
  Sex: Female

DRUGS (4)
  1. ISATUXIMAB [Suspect]
     Active Substance: ISATUXIMAB
     Indication: Plasma cell myeloma
     Dosage: 10 MG/KG
     Dates: start: 20230524, end: 20230524
  2. LENALIDOMIDE [Suspect]
     Active Substance: LENALIDOMIDE
     Indication: Plasma cell myeloma
     Dosage: 20 MG (DAY 1-21)
     Route: 048
     Dates: start: 20230524, end: 20230524
  3. LENALIDOMIDE [Suspect]
     Active Substance: LENALIDOMIDE
     Dosage: 20 MG (DAY 1-21)
     Route: 048
     Dates: start: 20230531, end: 20230531
  4. LENALIDOMIDE [Suspect]
     Active Substance: LENALIDOMIDE
     Dosage: UNK
     Route: 065
     Dates: start: 20230604

REACTIONS (2)
  - Pneumonia bacterial [Not Recovered/Not Resolved]
  - Metapneumovirus pneumonia [Not Recovered/Not Resolved]

NARRATIVE: CASE EVENT DATE: 20230531
